FAERS Safety Report 10432286 (Version 1)
Quarter: 2014Q3

REPORT INFORMATION
  Report Type: Spontaneous
  Country: US (occurrence: None)
  Receive Date: 20140903
  Receipt Date: 20140903
  Transmission Date: 20150326
  Serious: Yes (Hospitalization)
  Sender: FDA-Public Use
  Company Number: None

PATIENT
  Age: 58 Year
  Sex: Male
  Weight: 83.8 kg

DRUGS (1)
  1. LEUPROLIDE ACETATE. [Suspect]
     Active Substance: LEUPROLIDE ACETATE

REACTIONS (6)
  - Endocarditis [None]
  - Diarrhoea [None]
  - Diabetes mellitus inadequate control [None]
  - Haemodialysis [None]
  - Staphylococcal sepsis [None]
  - Renal failure acute [None]

NARRATIVE: CASE EVENT DATE: 20140815
